FAERS Safety Report 6808349-X (Version None)
Quarter: 2010Q2

REPORT INFORMATION
  Report Type: 
  Country: None (occurrence: None)
  Receive Date: 20100629
  Receipt Date: 20090518
  Transmission Date: 20101027
  Serious: No
  Sender: FDA-Public Use
  Company Number: US-PFIZER INC-2009215046

PATIENT
  Sex: Male

DRUGS (2)
  1. VIAGRA [Suspect]
  2. LEVITRA [Suspect]

REACTIONS (2)
  - DYSPEPSIA [None]
  - HEADACHE [None]
